FAERS Safety Report 19494692 (Version 1)
Quarter: 2021Q3

REPORT INFORMATION
  Report Type: Spontaneous
  Country: BE (occurrence: BE)
  Receive Date: 20210706
  Receipt Date: 20210706
  Transmission Date: 20211014
  Serious: Yes (Other)
  Sender: FDA-Public Use
  Company Number: BE-JNJFOC-20210667673

PATIENT
  Age: 77 Year
  Sex: Male

DRUGS (6)
  1. TREMFYA [Suspect]
     Active Substance: GUSELKUMAB
  2. SPIOLTO [Concomitant]
     Active Substance: OLODATEROL HYDROCHLORIDE\TIOTROPIUM BROMIDE MONOHYDRATE
  3. TREMFYA [Suspect]
     Active Substance: GUSELKUMAB
     Indication: PSORIASIS
     Route: 058
     Dates: start: 202103
  4. NEBIVOLOL. [Concomitant]
     Active Substance: NEBIVOLOL
  5. TREMFYA [Suspect]
     Active Substance: GUSELKUMAB
  6. TRITACE [Concomitant]
     Active Substance: RAMIPRIL

REACTIONS (1)
  - Erectile dysfunction [Unknown]

NARRATIVE: CASE EVENT DATE: 2021
